FAERS Safety Report 7969875-3 (Version None)
Quarter: 2011Q4

REPORT INFORMATION
  Report Type: 
  Country: None (occurrence: None)
  Receive Date: 20111121
  Receipt Date: 20110808
  Transmission Date: 20120403
  Serious: No
  Sender: FDA-Public Use
  Company Number: 1000022730

PATIENT
  Age: 47 Year
  Sex: Female

DRUGS (6)
  1. VIIBRYD [Suspect]
     Indication: DEPRESSION
     Dosage: 40 MG (40 MG, 1 IN 1 D), ORAL
     Route: 048
     Dates: start: 20110712, end: 20110721
  2. VIIBRYD [Suspect]
     Indication: DEPRESSION
     Dosage: 10 MG (10 MG, 1 IN 1 D), ORAL, 20 MG (20 MG, 1 IN 1 D), ORAL
     Route: 048
     Dates: end: 20110711
  3. VIIBRYD [Suspect]
     Indication: DEPRESSION
     Dosage: 10 MG (10 MG, 1 IN 1 D), ORAL, 20 MG (20 MG, 1 IN 1 D), ORAL
     Route: 048
     Dates: start: 20110621
  4. CYMBALTA (DULOXETINE HYDROCHLORIDE) (DULOXETINE HYDROCHLORIDE) [Concomitant]
  5. PROVIGIL [Concomitant]
  6. AMBIEN [Concomitant]

REACTIONS (6)
  - ASTHENIA [None]
  - FATIGUE [None]
  - BLOOD GLUCOSE DECREASED [None]
  - ABDOMINAL PAIN [None]
  - DIARRHOEA [None]
  - NAUSEA [None]
